FAERS Safety Report 4641150-4 (Version None)
Quarter: 2005Q2

REPORT INFORMATION
  Report Type: 
  Country: None (occurrence: None)
  Receive Date: 20050421
  Receipt Date: 20050302
  Transmission Date: 20051028
  Serious: Yes (Hospitalization, Other)
  Sender: FDA-Public Use
  Company Number: US-BRISTOL-MYERS SQUIBB COMPANY-12883831

PATIENT
  Age: 42 Year
  Sex: Female
  Weight: 67 kg

DRUGS (9)
  1. CETUXIMAB [Suspect]
     Indication: NON-SMALL CELL LUNG CANCER
     Dosage: 1ST AND MOST RECENT CETUXIMAB INFUSION ON 04-JAN-2005. CETUXIMAB PERMANENTLY DISCONTINUED.
     Route: 042
     Dates: start: 20050104
  2. CARBOPLATIN [Suspect]
     Indication: NON-SMALL CELL LUNG CANCER
     Dosage: 1ST AND MOST RECENT INFUSION ADMINISTERED ON 04-JAN-2005. CARBOPLATIN PERMANENTLY DISCONTINUED.
     Route: 042
     Dates: start: 20050104
  3. DOCETAXEL [Suspect]
     Indication: NON-SMALL CELL LUNG CANCER
     Dosage: 1ST AND MOST RECENT DOCETAXEL INFUSION ADMINISTERED 04-JAN-2005. DOCETAXEL PERMANENTLY DISCONTINUED.
     Route: 042
     Dates: start: 20050104, end: 20050104
  4. DURAGESIC-100 [Concomitant]
     Indication: PAIN
     Dosage: DURAGESIC 100 MCG TOPICAL Q 3 DAYS.
     Route: 061
  5. LORTAB [Concomitant]
     Indication: PAIN
     Dosage: LORTAB 1-2 TABS. PO Q 4-6 HOURS.
     Route: 048
  6. DAPTOMYCIN [Concomitant]
     Indication: STAPHYLOCOCCAL INFECTION
     Dosage: DAPTOMYCIN 600 MG IVPB Q 24 HOURS.
     Route: 042
  7. DECADRON [Concomitant]
     Indication: NAUSEA
     Dosage: DECADRON 2 MG PO BID.
     Route: 048
  8. NOVOLIN 70/30 [Concomitant]
     Indication: DIABETES MELLITUS
     Dosage: NOVOLIN 70/30 35 IU SQ Q AM AND 25 IU SQ Q PM.
     Route: 058
  9. FLONASE [Concomitant]
     Dosage: FLONASE 1 PUFF BID.

REACTIONS (8)
  - CELLULITIS [None]
  - INFECTION [None]
  - MENINGITIS [None]
  - MENTAL STATUS CHANGES [None]
  - METASTASES TO CENTRAL NERVOUS SYSTEM [None]
  - PAIN [None]
  - PYREXIA [None]
  - SEPSIS [None]
